FAERS Safety Report 6232058-1 (Version None)
Quarter: 2009Q2

REPORT INFORMATION
  Report Type: 
  Country: None (occurrence: None)
  Receive Date: 20090616
  Receipt Date: 20090615
  Transmission Date: 20091009
  Serious: Yes (Other)
  Sender: FDA-Public Use
  Company Number: GBWYE100931OCT05

PATIENT
  Age: 6 Year
  Sex: Male

DRUGS (3)
  1. IBUPROFEN [Suspect]
     Indication: PYREXIA
     Route: 048
  2. ANTIBIOTICS FOR TOPICAL USE [Concomitant]
     Dosage: UNKNOWN
  3. ACETAMINOPHEN [Suspect]
     Indication: PYREXIA
     Dosage: UNKNOWN
     Route: 048

REACTIONS (6)
  - COAGULOPATHY [None]
  - CONDITION AGGRAVATED [None]
  - HAEMORRHAGIC DIATHESIS [None]
  - NEPHROPATHY TOXIC [None]
  - PLEURAL EFFUSION [None]
  - TUBULOINTERSTITIAL NEPHRITIS [None]
